FAERS Safety Report 5329244-1 (Version None)
Quarter: 2007Q2

REPORT INFORMATION
  Report Type: 
  Country: None (occurrence: None)
  Receive Date: 20070518
  Receipt Date: 20070507
  Transmission Date: 20071010
  Serious: Yes (Other)
  Sender: FDA-Public Use
  Company Number: US-PFIZER INC-2007037457

PATIENT
  Sex: Male
  Weight: 129.54 kg

DRUGS (9)
  1. CHANTIX [Suspect]
     Indication: SMOKING CESSATION THERAPY
     Dosage: TEXT:STARTER PACK
     Dates: start: 20070415, end: 20070401
  2. AMOXICILLIN W/CLAVULANATE POTASSIUM [Suspect]
     Indication: BRONCHITIS
     Dates: start: 20070401, end: 20070501
  3. CLONIDINE [Concomitant]
  4. METFORMIN HYDROCHLORIDE [Concomitant]
  5. ACETYLSALICYLIC ACID SRT [Concomitant]
  6. AVANDIA [Concomitant]
  7. LIPITOR [Concomitant]
  8. TOPROL-XL [Concomitant]
  9. GLUCOTROL [Concomitant]

REACTIONS (10)
  - BLOOD GLUCOSE INCREASED [None]
  - BRONCHITIS [None]
  - COUGH [None]
  - DRUG INEFFECTIVE [None]
  - DYSGEUSIA [None]
  - ILL-DEFINED DISORDER [None]
  - INCREASED UPPER AIRWAY SECRETION [None]
  - PHARYNGOLARYNGEAL PAIN [None]
  - PYREXIA [None]
  - WHEEZING [None]
